FAERS Safety Report 5765456-0 (Version None)
Quarter: 2008Q2

REPORT INFORMATION
  Report Type: 
  Country: None (occurrence: None)
  Receive Date: 20080611
  Receipt Date: 20080604
  Transmission Date: 20081010
  Serious: Yes (Other)
  Sender: FDA-Public Use
  Company Number: A0731168A

PATIENT
  Sex: Female

DRUGS (7)
  1. ADVAIR DISKUS 100/50 [Suspect]
     Indication: ASTHMA
     Dosage: 1PUFF TWICE PER DAY
     Route: 055
     Dates: start: 20030101
  2. FLONASE [Suspect]
     Indication: MULTIPLE ALLERGIES
     Route: 045
     Dates: start: 20050101, end: 20050101
  3. VALTREX [Suspect]
     Indication: GENITAL HERPES
     Route: 048
  4. FLUTICASONE PROPIONATE [Suspect]
     Indication: MULTIPLE ALLERGIES
     Dates: start: 20050101, end: 20050101
  5. SINGULAIR [Concomitant]
  6. ALBUTEROL [Concomitant]
  7. ALBUTEROL [Concomitant]

REACTIONS (14)
  - ASTHMA [None]
  - CHEST DISCOMFORT [None]
  - COUGH [None]
  - DRUG EXPOSURE DURING PREGNANCY [None]
  - DRUG INEFFECTIVE [None]
  - DRY EYE [None]
  - HERPES VIRUS INFECTION [None]
  - INCORRECT DOSE ADMINISTERED [None]
  - INFLUENZA [None]
  - LIVE BIRTH [None]
  - NASOPHARYNGITIS [None]
  - POSTNASAL DRIP [None]
  - THERAPEUTIC RESPONSE UNEXPECTED [None]
  - WHEEZING [None]
